FAERS Safety Report 9511207 (Version 1)
Quarter: 2013Q1

REPORT INFORMATION
  Report Type: Spontaneous
  Country: US (occurrence: None)
  Receive Date: 20130305
  Receipt Date: 20130305
  Transmission Date: 20140127
  Serious: Yes (Hospitalization)
  Sender: FDA-Public Use
  Company Number: 163-21880-12122295

PATIENT
  Age: 73 Year
  Sex: Male
  Weight: 136.08 kg

DRUGS (10)
  1. REVLIMID [Suspect]
     Indication: PLASMA CELL MYELOMA
     Dosage: 5 MG, 1 IN 1 D, PO
     Route: 048
     Dates: start: 20100401
  2. ASPIRIN [Concomitant]
  3. ATENOLOL (ATENOLOL) [Concomitant]
  4. AZOR (ALPRAZOLAM) [Concomitant]
  5. HYDROCHLOROTHIAZIDE (HYDROCHLOROTHIAZIDE) [Concomitant]
  6. LIPITOR (ATORVASTATIN) [Concomitant]
  7. VITAMINS [Concomitant]
  8. NOVOLOG (INSULIN ASPART) [Concomitant]
  9. PAXIL (PAROXETINE HYDROCHLORIDE) [Concomitant]
  10. VIAGRA (SILDENAFIL CITRATE) [Concomitant]

REACTIONS (4)
  - Pneumonia [None]
  - Pancytopenia [None]
  - Pruritus [None]
  - Muscular weakness [None]
